FAERS Safety Report 9187304 (Version 1)
Quarter: 2013Q1

REPORT INFORMATION
  Report Type: Spontaneous
  Country: MX (occurrence: MX)
  Receive Date: 20130325
  Receipt Date: 20130325
  Transmission Date: 20140127
  Serious: Yes (Other)
  Sender: FDA-Public Use
  Company Number: PHHY2012MX078432

PATIENT
  Age: 79 Year
  Sex: Female

DRUGS (1)
  1. EXELON PATCH [Suspect]
     Indication: DEMENTIA ALZHEIMER^S TYPE
     Dosage: 2 DF, DAILY
     Route: 062
     Dates: end: 201207

REACTIONS (5)
  - Glaucoma [Not Recovered/Not Resolved]
  - Dementia Alzheimer^s type [Unknown]
  - Application site reaction [Recovered/Resolved]
  - Application site hypersensitivity [Recovered/Resolved]
  - Drug administration error [Unknown]
